FAERS Safety Report 25705684 (Version 1)
Quarter: 2025Q3

REPORT INFORMATION
  Report Type: Spontaneous
  Country: US (occurrence: US)
  Receive Date: 20250820
  Receipt Date: 20250820
  Transmission Date: 20251020
  Serious: Yes (Other)
  Sender: AMGEN
  Company Number: US-AMGEN-USASP2025162241

PATIENT

DRUGS (7)
  1. PREDNISONE [Suspect]
     Active Substance: PREDNISONE
     Indication: Immunosuppressant drug therapy
     Dosage: 10 MILLIGRAM, QD  (BY DAY 5)
     Route: 065
  2. BELATACEPT [Concomitant]
     Active Substance: BELATACEPT
     Indication: Immunosuppressant drug therapy
     Route: 065
  3. TACROLIMUS [Concomitant]
     Active Substance: TACROLIMUS
     Indication: Immunosuppressant drug therapy
     Route: 065
  4. MYCOPHENOLIC ACID [Concomitant]
     Active Substance: MYCOPHENOLIC ACID
     Indication: Immunosuppressant drug therapy
     Route: 065
  5. THYMOGLOBULIN [Concomitant]
     Active Substance: LAPINE T-LYMPHOCYTE IMMUNE GLOBULIN
     Indication: Immunosuppressant drug therapy
     Route: 065
  6. BORTEZOMIB [Concomitant]
     Active Substance: BORTEZOMIB
     Indication: Immunosuppressant drug therapy
     Route: 065
  7. ECULIZUMAB [Concomitant]
     Active Substance: ECULIZUMAB
     Indication: Immunosuppressant drug therapy
     Route: 065

REACTIONS (15)
  - Abdominal infection [Unknown]
  - Pneumonia [Unknown]
  - Bacteraemia [Unknown]
  - Aspergillus infection [Unknown]
  - Cytomegalovirus infection [Unknown]
  - Urinary tract infection [Unknown]
  - Herpes simplex [Unknown]
  - Soft tissue infection [Unknown]
  - Varicella zoster virus infection [Unknown]
  - COVID-19 [Unknown]
  - Respiratory tract infection viral [Unknown]
  - Candida infection [Unknown]
  - Gastrointestinal infection [Unknown]
  - Infection [Unknown]
  - Fungal infection [Unknown]
